FAERS Safety Report 8246439-8 (Version None)
Quarter: 2012Q1

REPORT INFORMATION
  Report Type: 
  Country: None (occurrence: None)
  Receive Date: 20120329
  Receipt Date: 20120329
  Transmission Date: 20120608
  Serious: Yes (Hospitalization)
  Sender: FDA-Public Use
  Company Number: None

PATIENT
  Age: 75 Year
  Sex: Male
  Weight: 96 kg

DRUGS (2)
  1. CLOPIDOGREL [Suspect]
     Indication: CORONARY ARTERIAL STENT INSERTION
     Dosage: 75 MG EVERY DAY PO
     Route: 048
     Dates: start: 20111130, end: 20120109
  2. MELOXICAM [Suspect]
     Indication: PAIN
     Dosage: 15 MG EVERY DAY PO
     Route: 048
     Dates: start: 20110812, end: 20111209

REACTIONS (7)
  - GASTRITIS EROSIVE [None]
  - GASTRIC ULCER [None]
  - ASTHENIA [None]
  - GASTRIC HAEMORRHAGE [None]
  - MELAENA [None]
  - THROMBOSIS [None]
  - DUODENAL ULCER [None]
